FAERS Safety Report 5829010-4 (Version None)
Quarter: 2008Q3

REPORT INFORMATION
  Report Type: 
  Country: None (occurrence: None)
  Receive Date: 20080731
  Receipt Date: 20080729
  Transmission Date: 20090109
  Serious: Yes (Death, Hospitalization)
  Sender: FDA-Public Use
  Company Number: PHBS2008GB05239

PATIENT
  Age: 24 Year
  Sex: Female

DRUGS (7)
  1. NEORAL [Suspect]
     Indication: LUNG TRANSPLANT
     Dosage: 4.5 MG/KG
     Route: 048
  2. AZATHIOPRINE [Suspect]
     Indication: LUNG TRANSPLANT
     Dosage: 6 MG/KG/D
     Route: 048
  3. PREDNISOLONE [Suspect]
     Indication: LUNG TRANSPLANT
  4. ANTIBIOTICS [Concomitant]
     Dosage: UNK
  5. AMPHOTERICIN B [Concomitant]
     Dosage: UNK
  6. AMPHOTERICIN B [Concomitant]
     Route: 031
  7. ITRACONAZOLE [Concomitant]
     Route: 048

REACTIONS (18)
  - ABDOMINAL PAIN [None]
  - ASPERGILLOSIS [None]
  - CARDIAC MURMUR [None]
  - CARDIAC VALVE VEGETATION [None]
  - CIRCULATORY COLLAPSE [None]
  - DYSPNOEA [None]
  - EYE INFECTION FUNGAL [None]
  - EYE PAIN [None]
  - FUNGAL ENDOCARDITIS [None]
  - FUNGAL SEPSIS [None]
  - INTESTINAL INFARCTION [None]
  - LAPAROTOMY [None]
  - MASS [None]
  - MITRAL VALVE INCOMPETENCE [None]
  - MITRAL VALVE REPAIR [None]
  - OCULAR HYPERAEMIA [None]
  - SEPTIC EMBOLUS [None]
  - VISUAL ACUITY REDUCED [None]
